FAERS Safety Report 15377859 (Version 1)
Quarter: 2018Q3

REPORT INFORMATION
  Report Type: Spontaneous
  Country: AT (occurrence: AT)
  Receive Date: 20180913
  Receipt Date: 20180913
  Transmission Date: 20181010
  Serious: Yes (Other)
  Sender: FDA-Public Use
  Company Number: AT-ROCHE-2183316

PATIENT
  Sex: Female

DRUGS (3)
  1. DOCETAXEL. [Suspect]
     Active Substance: DOCETAXEL
     Indication: BREAST CANCER
     Dosage: NEOADJUVANT
     Route: 065
     Dates: start: 20170810, end: 201801
  2. PERJETA [Suspect]
     Active Substance: PERTUZUMAB
     Indication: BREAST CANCER
     Dosage: NEOADJUVANT
     Route: 065
     Dates: start: 20170810, end: 201801
  3. HERCEPTIN [Suspect]
     Active Substance: TRASTUZUMAB
     Indication: BREAST CANCER
     Dosage: NEOADJUVANT
     Route: 042
     Dates: start: 20170810, end: 201801

REACTIONS (2)
  - Erythema [Unknown]
  - Lymphangiosis carcinomatosa [Unknown]
